FAERS Safety Report 9159866 (Version 1)
Quarter: 2013Q1

REPORT INFORMATION
  Report Type: Spontaneous
  Country: US (occurrence: US)
  Receive Date: 20130313
  Receipt Date: 20130313
  Transmission Date: 20140127
  Serious: Yes (Other)
  Sender: FDA-Public Use
  Company Number: US-PFIZER INC-2013081401

PATIENT
  Age: 62 Year
  Sex: Female
  Weight: 54.42 kg

DRUGS (1)
  1. LYRICA [Suspect]
     Indication: NEURALGIA
     Dosage: UNK
     Route: 048

REACTIONS (15)
  - Osteoporosis [Unknown]
  - Intervertebral disc degeneration [Unknown]
  - Intervertebral disc compression [Unknown]
  - Road traffic accident [Unknown]
  - Back disorder [Unknown]
  - Foot fracture [Unknown]
  - Spinal fracture [Unknown]
  - Musculoskeletal disorder [Unknown]
  - Fall [Unknown]
  - Joint injury [Unknown]
  - Thoracic vertebral fracture [Unknown]
  - Foot fracture [Unknown]
  - Gait disturbance [Unknown]
  - Impaired work ability [Unknown]
  - Pain [Unknown]
